FAERS Safety Report 5745480-4 (Version None)
Quarter: 2008Q2

REPORT INFORMATION
  Report Type: 
  Country: None (occurrence: None)
  Receive Date: 20080519
  Receipt Date: 20080416
  Transmission Date: 20081010
  Serious: No
  Sender: FDA-Public Use
  Company Number: TPA2008A00523

PATIENT
  Age: 52 Year
  Sex: Female
  Weight: 85.7298 kg

DRUGS (6)
  1. ROZEREM [Suspect]
     Indication: INSOMNIA
     Dosage: 8 MG, QHS, PER ORAL ; 1-2 TABLETS, 8 MG, QHS, PER ORAL
     Route: 048
     Dates: start: 20071101, end: 20071201
  2. ROZEREM [Suspect]
     Indication: INSOMNIA
     Dosage: 8 MG, QHS, PER ORAL ; 1-2 TABLETS, 8 MG, QHS, PER ORAL
     Route: 048
     Dates: start: 20071201
  3. KLONOPIN [Concomitant]
  4. WELLBUTRIN XL [Concomitant]
  5. TRAZODONE HCL [Concomitant]
  6. TOPAMAX [Concomitant]

REACTIONS (5)
  - DECREASED ACTIVITY [None]
  - EATING DISORDER [None]
  - MAJOR DEPRESSION [None]
  - OVERDOSE [None]
  - POOR QUALITY SLEEP [None]
